FAERS Safety Report 21704360 (Version 1)
Quarter: 2022Q4

REPORT INFORMATION
  Report Type: Spontaneous
  Country: US (occurrence: US)
  Receive Date: 20221209
  Receipt Date: 20221209
  Transmission Date: 20230112
  Serious: Yes (Hospitalization)
  Sender: FDA-Public Use
  Company Number: US-RECORDATI RARE DISEASE INC.-2022006224

PATIENT
  Age: 39 Year
  Sex: Female

DRUGS (2)
  1. PANHEMATIN [Suspect]
     Active Substance: HEMIN
     Indication: Porphyria acute
     Dosage: UNK
     Route: 042
  2. PANHEMATIN [Suspect]
     Active Substance: HEMIN
     Dosage: UNK
     Route: 042
     Dates: start: 20220908

REACTIONS (5)
  - Condition aggravated [Unknown]
  - Vein rupture [Unknown]
  - Application site scar [Unknown]
  - Application site bruise [Recovered/Resolved]
  - Application site pain [Recovered/Resolved]

NARRATIVE: CASE EVENT DATE: 20220908
